FAERS Safety Report 16849850 (Version 1)
Quarter: 2019Q4

REPORT INFORMATION
  Report Type: Spontaneous
  Country: US (occurrence: US)
  Receive Date: 20190925
  Receipt Date: 20190925
  Transmission Date: 20200122
  Serious: No
  Sender: FDA-Public Use
  Company Number: None

PATIENT
  Age: 47 Year
  Sex: Male

DRUGS (22)
  1. NYSTATIN. [Concomitant]
     Active Substance: NYSTATIN
  2. PANTOPRAZOLE [Concomitant]
     Active Substance: PANTOPRAZOLE
  3. MIRALAX [Concomitant]
     Active Substance: POLYETHYLENE GLYCOL 3350
  4. PEPTO-BISMOL [Concomitant]
     Active Substance: BISMUTH SUBSALICYLATE
  5. FENOFIBRATE. [Concomitant]
     Active Substance: FENOFIBRATE
  6. MONTELUKAST [Concomitant]
     Active Substance: MONTELUKAST SODIUM
  7. BIKTARVY [Suspect]
     Active Substance: BICTEGRAVIR SODIUM\EMTRICITABINE\TENOFOVIR ALAFENAMIDE FUMARATE
     Indication: HIV INFECTION
     Route: 048
     Dates: start: 20180401, end: 20190925
  8. MELOXICAM. [Concomitant]
     Active Substance: MELOXICAM
  9. METOPROLOL SUCCINATE. [Concomitant]
     Active Substance: METOPROLOL SUCCINATE
  10. SAPHRIS [Concomitant]
     Active Substance: ASENAPINE MALEATE
  11. BUSPIRONE [Concomitant]
     Active Substance: BUSPIRONE HYDROCHLORIDE
  12. VITAMIN D3 [Concomitant]
     Active Substance: CHOLECALCIFEROL
  13. ATORVASTATIN [Concomitant]
     Active Substance: ATORVASTATIN
  14. BUPROPION. [Concomitant]
     Active Substance: BUPROPION
  15. HYDROXYZINE [Concomitant]
     Active Substance: HYDROXYZINE HYDROCHLORIDE
  16. VRAYLAR [Concomitant]
     Active Substance: CARIPRAZINE
  17. VENTOLIN [Concomitant]
     Active Substance: ALBUTEROL SULFATE
  18. IMODIUM [Concomitant]
     Active Substance: LOPERAMIDE HYDROCHLORIDE
  19. SILDENAFIL. [Concomitant]
     Active Substance: SILDENAFIL
  20. ESCITALOPRAM [Concomitant]
     Active Substance: ESCITALOPRAM OXALATE
  21. KETOCONAZOLE SHAMPOO [Concomitant]
     Active Substance: KETOCONAZOLE
  22. CLOBETASOL SOLUTION [Concomitant]

REACTIONS (1)
  - Weight increased [None]

NARRATIVE: CASE EVENT DATE: 20190925
